FAERS Safety Report 5911818-8 (Version None)
Quarter: 2008Q4

REPORT INFORMATION
  Report Type: 
  Country: None (occurrence: None)
  Receive Date: 20081008
  Receipt Date: 20081003
  Transmission Date: 20090506
  Serious: Yes (Disabling, Other)
  Sender: FDA-Public Use
  Company Number: GB-RANBAXY-2008RR-16569

PATIENT

DRUGS (7)
  1. SIMVASTATIN [Suspect]
     Indication: BLOOD CHOLESTEROL INCREASED
     Dosage: 40 MG, UNK
     Route: 048
     Dates: start: 20070514
  2. VOLTAREN [Suspect]
     Indication: BACK PAIN
     Dosage: 50 MG, UNK
     Route: 048
     Dates: start: 20080708, end: 20080709
  3. ASPIRIN [Concomitant]
     Indication: MYOCARDIAL ISCHAEMIA
     Dosage: 75 ML, UNK
     Route: 048
     Dates: start: 20070514
  4. ASPIRIN [Concomitant]
     Indication: PROPHYLAXIS
  5. PHOLCODINE [Concomitant]
     Indication: COUGH
     Dosage: UNK
     Route: 048
     Dates: start: 20050703, end: 20080710
  6. CODEINE LINCTUS [Concomitant]
     Indication: COUGH
     Dosage: 5 MG, PRN
     Route: 048
     Dates: start: 20080703, end: 20080715
  7. IBUPROFEN [Concomitant]

REACTIONS (3)
  - FALL [None]
  - HEAD INJURY [None]
  - LOSS OF CONSCIOUSNESS [None]
